FAERS Safety Report 12303923 (Version 4)
Quarter: 2017Q4

REPORT INFORMATION
  Report Type: Spontaneous
  Country: US (occurrence: US)
  Receive Date: 20160426
  Receipt Date: 20171123
  Transmission Date: 20180320
  Serious: No
  Sender: FDA-Public Use
  Company Number: US-JNJFOC-20160411095

PATIENT
  Age: 28 Year
  Sex: Male

DRUGS (10)
  1. RISPERDAL [Suspect]
     Active Substance: RISPERIDONE
     Indication: DISTURBANCE IN SOCIAL BEHAVIOUR
     Dosage: VARYING DOSE OF 0.5 MG, 1.0 MG. 1.5 MG AND 3.0 MG
     Route: 048
     Dates: start: 20020829, end: 20060130
  2. RISPERDAL [Suspect]
     Active Substance: RISPERIDONE
     Indication: BIPOLAR DISORDER
     Dosage: VARYING DOSE OF 0.5 MG, 1.0 MG. 1.5 MG AND 3.0 MG
     Route: 048
     Dates: start: 20020829, end: 20060130
  3. RISPERDAL [Suspect]
     Active Substance: RISPERIDONE
     Indication: DEPRESSION
     Dosage: VARYING DOSE OF 0.5 MG, 1.0 MG. 1.5 MG AND 3.0 MG
     Route: 048
     Dates: start: 20020829, end: 20060130
  4. RISPERDAL [Suspect]
     Active Substance: RISPERIDONE
     Indication: POST-TRAUMATIC STRESS DISORDER
     Dosage: VARYING DOSE OF 0.5 MG, 1.0 MG. 1.5 MG AND 3.0 MG
     Route: 048
     Dates: start: 20020829, end: 20060130
  5. RISPERDAL [Suspect]
     Active Substance: RISPERIDONE
     Indication: ATTENTION DEFICIT/HYPERACTIVITY DISORDER
     Dosage: VARYING DOSE OF 0.5 MG, 1.0 MG. 1.5 MG AND 3.0 MG
     Route: 048
     Dates: start: 20020829, end: 20060130
  6. RISPERDAL [Suspect]
     Active Substance: RISPERIDONE
     Indication: AGGRESSION
     Dosage: VARYING DOSE OF 0.5 MG, 1.0 MG. 1.5 MG AND 3.0 MG
     Route: 048
     Dates: start: 20020829, end: 20060130
  7. RISPERDAL [Suspect]
     Active Substance: RISPERIDONE
     Indication: HALLUCINATION, AUDITORY
     Dosage: VARYING DOSE OF 0.5 MG, 1.0 MG. 1.5 MG AND 3.0 MG
     Route: 048
     Dates: start: 20020829, end: 20060130
  8. RISPERDAL [Suspect]
     Active Substance: RISPERIDONE
     Indication: CONDUCT DISORDER
     Dosage: VARYING DOSE OF 0.5 MG, 1.0 MG. 1.5 MG AND 3.0 MG
     Route: 048
     Dates: start: 20020829, end: 20060130
  9. RISPERDAL [Suspect]
     Active Substance: RISPERIDONE
     Indication: OPPOSITIONAL DEFIANT DISORDER
     Dosage: VARYING DOSE OF 0.5 MG, 1.0 MG. 1.5 MG AND 3.0 MG
     Route: 048
     Dates: start: 20020829, end: 20060130
  10. RISPERDAL [Suspect]
     Active Substance: RISPERIDONE
     Indication: PSYCHOTIC DISORDER
     Dosage: VARYING DOSE OF 0.5 MG, 1.0 MG. 1.5 MG AND 3.0 MG
     Route: 048
     Dates: start: 20020829, end: 20060130

REACTIONS (3)
  - Weight increased [Unknown]
  - Emotional disorder [Unknown]
  - Gynaecomastia [Unknown]

NARRATIVE: CASE EVENT DATE: 20160408
